FAERS Safety Report 5375895-8 (Version None)
Quarter: 2007Q3

REPORT INFORMATION
  Report Type: 
  Country: None (occurrence: None)
  Receive Date: 20070702
  Receipt Date: 20070620
  Transmission Date: 20080115
  Serious: Yes (Other)
  Sender: FDA-Public Use
  Company Number: PHEH2007US09052

PATIENT
  Sex: Female

DRUGS (1)
  1. GENTEAL GEL (NVO) [Suspect]
     Indication: DRY EYE
     Dates: start: 19970101

REACTIONS (2)
  - RETINAL HAEMORRHAGE [None]
  - VISUAL DISTURBANCE [None]
